FAERS Safety Report 4474300-3 (Version None)
Quarter: 2004Q4

REPORT INFORMATION
  Report Type: 
  Country: None (occurrence: None)
  Receive Date: 20041014
  Receipt Date: 20041004
  Transmission Date: 20050328
  Serious: Yes (Hospitalization)
  Sender: FDA-Public Use
  Company Number: US-ROCHE-382346

PATIENT
  Age: 17 Year
  Sex: Male
  Weight: 71.5 kg

DRUGS (16)
  1. CELLCEPT [Suspect]
     Route: 042
     Dates: start: 20040929
  2. ZENAPAX [Concomitant]
     Indication: DRUG USE FOR UNKNOWN INDICATION
     Route: 042
     Dates: start: 20040929, end: 20040929
  3. MANNITOL [Concomitant]
     Route: 042
     Dates: start: 20040929, end: 20040929
  4. DOPAMINE HCL [Concomitant]
     Dosage: UNIT = UG/KG/MIN
     Route: 042
     Dates: start: 20040929, end: 20040929
  5. KEFZOL [Concomitant]
     Route: 042
     Dates: start: 20040929, end: 20040929
  6. LASIX [Concomitant]
     Route: 042
     Dates: start: 20040929, end: 20040929
  7. STP [Concomitant]
     Route: 042
     Dates: start: 20040929, end: 20040929
  8. FENTANYL [Concomitant]
     Route: 042
     Dates: start: 20040929, end: 20040929
  9. PROGRAF [Concomitant]
     Route: 048
     Dates: start: 20041003, end: 20041004
  10. LINEZOLID [Concomitant]
     Route: 042
     Dates: start: 20041001
  11. TIMENTIN [Concomitant]
     Route: 042
     Dates: start: 20041001
  12. GANCICLOVIR [Concomitant]
     Route: 042
     Dates: start: 20041004
  13. NU-IRON [Concomitant]
     Route: 048
     Dates: start: 20040929, end: 20040929
  14. SEPTRA SS [Concomitant]
     Route: 048
     Dates: start: 20040929, end: 20040929
  15. BUMEX [Concomitant]
     Route: 042
     Dates: start: 20041004, end: 20041004
  16. NORVASC [Concomitant]
     Route: 048
     Dates: start: 20041004, end: 20041004

REACTIONS (2)
  - ASPIRATION [None]
  - PULMONARY OEDEMA [None]
